FAERS Safety Report 12761029 (Version 1)
Quarter: 2016Q3

REPORT INFORMATION
  Report Type: Spontaneous
  Country: IN (occurrence: IN)
  Receive Date: 20160920
  Receipt Date: 20160920
  Transmission Date: 20161109
  Serious: Yes (Hospitalization, Other)
  Sender: FDA-Public Use
  Company Number: IN-ALVOGEN-2016-ALVOGEN-028489

PATIENT
  Age: 28 Year
  Sex: Male

DRUGS (6)
  1. DISULFIRAM. [Suspect]
     Active Substance: DISULFIRAM
     Indication: ALCOHOLISM
     Route: 065
  2. NITRAZEPAM [Concomitant]
     Active Substance: NITRAZEPAM
     Indication: SCHIZOPHRENIA
     Route: 065
  3. RISPERIDONE. [Concomitant]
     Active Substance: RISPERIDONE
     Indication: SCHIZOPHRENIA
     Route: 065
  4. TRIHEXYPHENIDYL [Concomitant]
     Active Substance: TRIHEXYPHENIDYL
     Indication: SCHIZOPHRENIA
     Route: 065
  5. CHLORDIAZEPOXIDE. [Concomitant]
     Active Substance: CHLORDIAZEPOXIDE
     Indication: SCHIZOPHRENIA
     Route: 065
  6. DISULFIRAM. [Suspect]
     Active Substance: DISULFIRAM
     Indication: SCHIZOPHRENIA
     Route: 065

REACTIONS (3)
  - Overdose [Unknown]
  - Neuroleptic malignant syndrome [Unknown]
  - Catatonia [Recovering/Resolving]
